FAERS Safety Report 16141601 (Version 1)
Quarter: 2019Q2

REPORT INFORMATION
  Report Type: Spontaneous
  Country: US (occurrence: US)
  Receive Date: 20190327
  Receipt Date: 20190327
  Transmission Date: 20190711
  Serious: No
  Sender: FDA-Public Use
  Company Number: None

PATIENT

DRUGS (2)
  1. ROTAGLIDE [Suspect]
     Active Substance: EGG YOLK\GLYCERIN\OLIVE OIL\PHOSPHOLIPID
     Indication: THERAPEUTIC PROCEDURE
  2. PROPOFOL. [Concomitant]
     Active Substance: PROPOFOL

REACTIONS (2)
  - Wrong product stored [None]
  - Product appearance confusion [None]

NARRATIVE: CASE EVENT DATE: 20190322
